FAERS Safety Report 6038259-X (Version None)
Quarter: 2009Q1

REPORT INFORMATION
  Report Type: 
  Country: None (occurrence: None)
  Receive Date: 20090115
  Receipt Date: 20090105
  Transmission Date: 20090719
  Serious: Yes (Death)
  Sender: FDA-Public Use
  Company Number: US-WYE-H07560309

PATIENT
  Age: 50 Year
  Sex: Male

DRUGS (10)
  1. IBUPROFEN [Suspect]
     Dosage: UNKNOWN
     Route: 048
     Dates: start: 20070101, end: 20070101
  2. LISINOPRIL [Suspect]
     Dosage: UNKNOWN
     Route: 048
     Dates: start: 20070101, end: 20070101
  3. FEXOFENADINE [Suspect]
     Dosage: UNKNOWN
     Route: 048
     Dates: start: 20070101, end: 20070101
  4. ATORVASTATIN CALCIUM [Suspect]
     Dosage: UNKNOWN
     Route: 048
     Dates: start: 20070101, end: 20070101
  5. CLOPIDOGREL [Suspect]
     Dosage: UNKNOWN
     Route: 048
     Dates: start: 20070101, end: 20070101
  6. ALLOPURINOL [Suspect]
     Dosage: UNKNOWN
     Route: 048
     Dates: start: 20070101, end: 20070101
  7. NAPROXEN [Suspect]
     Dosage: UNKNOWN
     Route: 048
     Dates: start: 20070101, end: 20070101
  8. MELOXICAM [Suspect]
     Dosage: UNKNOWN
     Route: 048
     Dates: start: 20070101, end: 20070101
  9. METOPROLOL TARTRATE [Suspect]
     Dosage: UNKNOWN
     Route: 048
     Dates: start: 20070101, end: 20070101
  10. PSEUDOEPHEDRINE HYDROCHLORIDE [Suspect]
     Dosage: UNKNOWN
     Route: 048
     Dates: start: 20070101, end: 20070101

REACTIONS (1)
  - COMPLETED SUICIDE [None]
